FAERS Safety Report 6475289-8 (Version None)
Quarter: 2009Q4

REPORT INFORMATION
  Report Type: 
  Country: None (occurrence: None)
  Receive Date: 20091204
  Receipt Date: 20090409
  Transmission Date: 20100525
  Serious: Yes (Disabling)
  Sender: FDA-Public Use
  Company Number: GB-ELI_LILLY_AND_COMPANY-GB200904002006

PATIENT
  Age: 58 Year
  Sex: Male
  Weight: 107.7 kg

DRUGS (10)
  1. BYETTA [Suspect]
     Indication: TYPE 2 DIABETES MELLITUS
     Dosage: 10 UG, UNK
     Route: 058
     Dates: start: 20080424
  2. SIMVASTATIN [Concomitant]
     Indication: HYPERLIPIDAEMIA
     Dosage: 40 MG, UNK
     Route: 048
  3. AMLODIPINE [Concomitant]
     Dosage: 5 MG, DAILY (1/D)
  4. ASPIRIN [Concomitant]
     Dosage: 75 MG, DAILY (1/D)
  5. GABAPENTIN [Concomitant]
     Dosage: 300 MG, DAILY (1/D)
  6. IRBESARTAN [Concomitant]
     Dosage: 300 MG, DAILY (1/D)
  7. LANTUS [Concomitant]
     Dosage: 60 IU, DAILY (1/D)
  8. METFORMIN HCL [Concomitant]
     Dosage: 500 MG, 2/D
  9. NATRILIX [Concomitant]
     Dosage: 1.5 MG, DAILY (1/D)
  10. PANTOPRAZOLE [Concomitant]
     Dosage: 20 MG, DAILY (1/D)

REACTIONS (1)
  - THROMBOSIS [None]
